FAERS Safety Report 7180323-6 (Version None)
Quarter: 2010Q4

REPORT INFORMATION
  Report Type: 
  Country: None (occurrence: None)
  Receive Date: 20101221
  Receipt Date: 20101210
  Transmission Date: 20110411
  Serious: Yes (Death, Hospitalization)
  Sender: FDA-Public Use
  Company Number: A0805567A

PATIENT
  Age: 58 Year
  Sex: Male
  Weight: 72.7 kg

DRUGS (5)
  1. AVANDIA [Suspect]
     Dosage: 4MG TWICE PER DAY
     Route: 048
     Dates: start: 20020401, end: 20031130
  2. PRILOSEC [Concomitant]
  3. LORAZEPAM [Concomitant]
  4. PRAVACHOL [Concomitant]
  5. STARLIX [Concomitant]

REACTIONS (1)
  - MYOCARDIAL INFARCTION [None]
